FAERS Safety Report 8825191 (Version 2)
Quarter: 2012Q4

REPORT INFORMATION
  Report Type: 
  Country: ES (occurrence: ES)
  Receive Date: 20121004
  Receipt Date: 20121205
  Transmission Date: 20130627
  Serious: Yes (Other)
  Sender: FDA-Public Use
  Company Number: ES-GLAXOSMITHKLINE-B0835260A

PATIENT
  Age: 83 Year
  Sex: Male

DRUGS (3)
  1. DUODART [Suspect]
     Indication: BENIGN PROSTATIC HYPERPLASIA
     Route: 048
     Dates: start: 2011, end: 20120915
  2. HALOPERIDOL [Concomitant]
     Indication: SCHIZOPHRENIA
     Route: 065
     Dates: start: 1976
  3. AKINETON [Concomitant]
     Indication: SCHIZOPHRENIA
     Route: 065
     Dates: start: 2008

REACTIONS (5)
  - Tachycardia [Recovered/Resolved]
  - Dizziness [Recovered/Resolved]
  - Malaise [Recovered/Resolved]
  - Nervousness [Recovered/Resolved]
  - Atrial fibrillation [Not Recovered/Not Resolved]
